FAERS Safety Report 8916090 (Version 4)
Quarter: 2013Q3

REPORT INFORMATION
  Report Type: Spontaneous
  Country: US (occurrence: US)
  Receive Date: 20121119
  Receipt Date: 20130923
  Transmission Date: 20140515
  Serious: Yes (Hospitalization, Other)
  Sender: FDA-Public Use
  Company Number: US-009507513-1211USA006987

PATIENT
  Sex: Female
  Weight: 113.38 kg

DRUGS (2)
  1. NUVARING [Suspect]
     Indication: CONTRACEPTION
     Dosage: UNK
     Route: 067
     Dates: start: 20090602, end: 20091214
  2. PROAIR (ALBUTEROL SULFATE) [Concomitant]
     Dosage: UNK
     Dates: start: 2004

REACTIONS (19)
  - Deep vein thrombosis [Unknown]
  - Pulmonary embolism [Unknown]
  - Mood swings [Recovered/Resolved]
  - H1N1 influenza [Unknown]
  - Gastric disorder [Unknown]
  - Dysmenorrhoea [Not Recovered/Not Resolved]
  - Pain in extremity [Unknown]
  - Back pain [Unknown]
  - Arthralgia [Unknown]
  - Metrorrhagia [Unknown]
  - Syncope [Unknown]
  - Head injury [Unknown]
  - Bronchitis [Unknown]
  - Sinusitis [Unknown]
  - Seasonal allergy [Unknown]
  - Migraine [Unknown]
  - Abdominal pain [Unknown]
  - Hirsutism [Unknown]
  - Obesity [Unknown]
